FAERS Safety Report 21113935 (Version 1)
Quarter: 2022Q3

REPORT INFORMATION
  Report Type: Spontaneous
  Country: US (occurrence: None)
  Receive Date: 20220721
  Receipt Date: 20220721
  Transmission Date: 20221027
  Serious: No
  Sender: FDA-Public Use
  Company Number: None

PATIENT

DRUGS (2)
  1. ENEMA (SODIUM PHOSPHATE, DIBASIC\SODIUM PHOSPHATE, MONOBASIC) [Suspect]
     Active Substance: SODIUM PHOSPHATE, DIBASIC\SODIUM PHOSPHATE, MONOBASIC
  2. EYE WASH SALINE [Suspect]
     Active Substance: SODIUM CHLORIDE\WATER
     Route: 031

REACTIONS (2)
  - Circumstance or information capable of leading to medication error [None]
  - Product packaging confusion [None]
